FAERS Safety Report 18699583 (Version 1)
Quarter: 2021Q1

REPORT INFORMATION
  Report Type: Spontaneous
  Country: US (occurrence: US)
  Receive Date: 20210105
  Receipt Date: 20210105
  Transmission Date: 20210419
  Serious: Yes (Other)
  Sender: FDA-Public Use
  Company Number: US-TEVA-2020-US-1865123

PATIENT
  Age: 69 Year
  Sex: Male

DRUGS (15)
  1. AUSTEDO [Suspect]
     Active Substance: DEUTETRABENAZINE
     Indication: TARDIVE DYSKINESIA
     Dosage: 12 MILLIGRAM DAILY; INITIAL TITRATING DOSE
     Route: 065
  2. AUSTEDO [Suspect]
     Active Substance: DEUTETRABENAZINE
     Dosage: 18 MILLIGRAM DAILY;
     Route: 065
     Dates: start: 20201208, end: 20201227
  3. GABAPENTIN. [Concomitant]
     Active Substance: GABAPENTIN
     Route: 048
  4. ACETAMINOPHEN PM EX ST [Concomitant]
     Dosage: 25?500 MG
     Route: 048
  5. OLANZAPINE. [Concomitant]
     Active Substance: OLANZAPINE
     Route: 048
  6. ATORVASTATIN CALCIUM. [Concomitant]
     Active Substance: ATORVASTATIN CALCIUM
     Route: 048
  7. BELSOMRA [Concomitant]
     Active Substance: SUVOREXANT
     Route: 048
  8. BENZTROPINE MESYLATE. [Concomitant]
     Active Substance: BENZTROPINE MESYLATE
     Route: 048
  9. MELATONIN MAXIMUM STRENGTH [Concomitant]
     Route: 048
  10. PRIMIDONE. [Concomitant]
     Active Substance: PRIMIDONE
     Route: 048
  11. RISPERIDONE. [Concomitant]
     Active Substance: RISPERIDONE
     Route: 048
  12. PRIMIDONE. [Concomitant]
     Active Substance: PRIMIDONE
     Route: 048
  13. PROPRANOLOL HCL ER [Concomitant]
     Dosage: EXTENDED RELEASE 24 HOUR 120 MG
     Route: 048
  14. LEVOTHYROXINE SODIUM. [Concomitant]
     Active Substance: LEVOTHYROXINE SODIUM
     Route: 048
  15. ACETAMINOPHEN EXTRA STRENGTH [Concomitant]
     Active Substance: ACETAMINOPHEN
     Route: 048

REACTIONS (3)
  - Pain in extremity [Recovered/Resolved]
  - Tremor [Recovered/Resolved]
  - Tardive dyskinesia [Recovered/Resolved]

NARRATIVE: CASE EVENT DATE: 20201218
